FAERS Safety Report 5681080-2 (Version None)
Quarter: 2008Q1

REPORT INFORMATION
  Report Type: 
  Country: None (occurrence: None)
  Receive Date: 20080325
  Receipt Date: 20080312
  Transmission Date: 20080703
  Serious: Yes (Death, Hospitalization, Other)
  Sender: FDA-Public Use
  Company Number: A-CH2007-15142

PATIENT
  Age: 10 Year
  Sex: Female

DRUGS (4)
  1. MIGLUSTAT(MGLUSTAT I.NP CAPSULE 100 MG) MIGLUSTAT(MIGLUSTAT) CAPSULE [Suspect]
     Indication: NIEMANN-PICK DISEASE
     Dosage: 200 MG, BID, ORAL
     Route: 048
     Dates: start: 20031010, end: 20070417
  2. CLONAZEPAM [Concomitant]
  3. IMIPRAMINE [Concomitant]
  4. PREDNISONE TAB [Concomitant]

REACTIONS (10)
  - ACROCHORDON [None]
  - CROHN'S DISEASE [None]
  - DISEASE PROGRESSION [None]
  - HAEMORRHOIDS [None]
  - LOWER RESPIRATORY TRACT INFECTION [None]
  - NIEMANN-PICK DISEASE [None]
  - PNEUMONIA [None]
  - PROCTALGIA [None]
  - SCOLIOSIS [None]
  - VULVAL ABSCESS [None]
